FAERS Safety Report 11057965 (Version 1)
Quarter: 2015Q2

REPORT INFORMATION
  Report Type: Spontaneous
  Country: US (occurrence: None)
  Receive Date: 20150421
  Receipt Date: 20150421
  Transmission Date: 20150821
  Serious: Yes (Death)
  Sender: FDA-Public Use
  Company Number: None

PATIENT
  Age: 94 Year
  Sex: Female

DRUGS (1)
  1. EXJADE [Suspect]
     Active Substance: DEFERASIROX
     Indication: IRON OVERLOAD
     Dosage: 500MG, QD, PO?
     Route: 048
     Dates: start: 20120920, end: 20150410

REACTIONS (3)
  - Pelvic fracture [None]
  - Fall [None]
  - Disease complication [None]

NARRATIVE: CASE EVENT DATE: 20150410
